FAERS Safety Report 10189433 (Version 3)
Quarter: 2014Q2

REPORT INFORMATION
  Report Type: Spontaneous
  Country: US (occurrence: US)
  Receive Date: 20140522
  Receipt Date: 20140522
  Transmission Date: 20141212
  Serious: No
  Sender: FDA-Public Use
  Company Number: US-ASTRAZENECA-2013SE62990

PATIENT
  Age: 61 Year
  Sex: Female
  Weight: 49.9 kg

DRUGS (1)
  1. PULMICORT FLEXHALER [Suspect]
     Indication: ATELECTASIS
     Dosage: 90 MCG, ONE INHALATION DAILY
     Route: 055
     Dates: start: 201307

REACTIONS (6)
  - Bronchitis [Unknown]
  - Speech disorder [Recovered/Resolved]
  - Off label use [Unknown]
  - Drug dose omission [Unknown]
  - Circumstance or information capable of leading to medication error [Unknown]
  - Intentional product misuse [Unknown]
